FAERS Safety Report 15180814 (Version 1)
Quarter: 2018Q3

REPORT INFORMATION
  Report Type: Spontaneous
  Country: JP (occurrence: JP)
  Receive Date: 20180723
  Receipt Date: 20180723
  Transmission Date: 20181010
  Serious: Yes (Death, Hospitalization)
  Sender: FDA-Public Use
  Company Number: JP-SHIONOGI, INC.-2018001020

PATIENT
  Age: 84 Year
  Sex: Female
  Weight: 40.8 kg

DRUGS (18)
  1. OXINORM                            /00045603/ [Concomitant]
     Active Substance: OXYCODONE HYDROCHLORIDE
     Indication: CANCER PAIN
     Dosage: 5 MG, PRN
     Route: 048
     Dates: start: 20180516, end: 20180624
  2. OXYCODONE                          /00045603/ [Concomitant]
     Active Substance: OXYCODONE
     Indication: CANCER PAIN
     Dosage: 5 MG, BID
     Route: 048
     Dates: start: 20180516, end: 20180517
  3. OXYCODONE                          /00045603/ [Concomitant]
     Active Substance: OXYCODONE
     Dosage: 10 MG, BID
     Route: 048
     Dates: start: 20180517
  4. ETODOLAC. [Concomitant]
     Active Substance: ETODOLAC
     Indication: CONSTIPATION
     Dosage: 200 MG, BID
     Route: 048
     Dates: start: 20180519, end: 20180528
  5. OXYCODONE                          /00045603/ [Concomitant]
     Active Substance: OXYCODONE
     Dosage: 20 MG, BID
     Route: 048
     Dates: start: 20180521
  6. MILNACIPRAN HYDROCHLORIDE. [Concomitant]
     Active Substance: MILNACIPRAN HYDROCHLORIDE
     Indication: CANCER PAIN
     Dosage: 25 MG, QD
     Route: 048
     Dates: start: 20180516, end: 20180528
  7. MAGMITT [Concomitant]
     Active Substance: MAGNESIUM OXIDE
     Indication: CONSTIPATION
     Dosage: 250 MG, TID
     Route: 048
     Dates: start: 20180516, end: 20180528
  8. NESINA [Concomitant]
     Active Substance: ALOGLIPTIN BENZOATE
     Indication: DIABETES MELLITUS
     Dosage: 12.5 MG, BID
     Route: 048
     Dates: end: 20180528
  9. VALSARTAN. [Concomitant]
     Active Substance: VALSARTAN
     Indication: HYPERTENSION
     Dosage: 40 MG, QD
     Route: 048
     Dates: end: 20180528
  10. LYRICA [Concomitant]
     Active Substance: PREGABALIN
     Indication: CANCER PAIN
     Dosage: 50 MG, BID
     Route: 048
     Dates: start: 201804, end: 20180518
  11. SYMPROIC [Suspect]
     Active Substance: NALDEMEDINE
     Indication: CONSTIPATION
     Dosage: 0.2 MG, QD
     Route: 048
     Dates: start: 20180523, end: 20180528
  12. LYRICA OD [Concomitant]
     Indication: CANCER PAIN
     Dosage: 75 MG, BID
     Route: 048
     Dates: start: 20180519, end: 20180528
  13. DECADRON [Concomitant]
     Active Substance: DEXAMETHASONE
     Indication: CANCER PAIN
     Dosage: 2 MG, BID
     Route: 048
     Dates: start: 20180518, end: 20180521
  14. SENNARIDE [Concomitant]
     Active Substance: SENNOSIDES A AND B
     Indication: CONSTIPATION
     Dosage: 24 MG, QD
     Route: 048
     Dates: start: 20180519, end: 20180528
  15. RABEPRAZOLE NA [Concomitant]
     Active Substance: RABEPRAZOLE SODIUM
     Indication: GASTROOESOPHAGEAL REFLUX DISEASE
     Dosage: 10 MG, QD
     Route: 048
     Dates: end: 20180528
  16. KARY UNI                           /00528801/ [Concomitant]
     Active Substance: PIRENOXINE
     Indication: CATARACT
     Dosage: 2 GTT, TID
     Route: 047
     Dates: end: 20180624
  17. OXYCODONE                          /00045603/ [Concomitant]
     Active Substance: OXYCODONE
     Dosage: 5 MG, BID
     Route: 048
     Dates: start: 20180518, end: 20180521
  18. OXYCODONE                          /00045603/ [Concomitant]
     Active Substance: OXYCODONE
     Dosage: 30 MG, BID
     Route: 048
     Dates: start: 20180523, end: 20180624

REACTIONS (2)
  - Breast cancer [Fatal]
  - Toxic skin eruption [Recovering/Resolving]

NARRATIVE: CASE EVENT DATE: 20180524
